FAERS Safety Report 13289570 (Version 2)
Quarter: 2017Q1

REPORT INFORMATION
  Report Type: Spontaneous
  Country: US (occurrence: US)
  Receive Date: 20170302
  Receipt Date: 20170321
  Transmission Date: 20170428
  Serious: Yes (Other)
  Sender: FDA-Public Use
  Company Number: PHEH2017US005398

PATIENT
  Age: 27 Year
  Sex: Male
  Weight: 90 kg

DRUGS (2)
  1. COSENTYX [Suspect]
     Active Substance: SECUKINUMAB
     Indication: PRODUCT USED FOR UNKNOWN INDICATION
     Route: 058
  2. COSENTYX [Suspect]
     Active Substance: SECUKINUMAB
     Route: 065

REACTIONS (8)
  - Food allergy [Unknown]
  - Psoriasis [Unknown]
  - Generalised oedema [Unknown]
  - Secretion discharge [Unknown]
  - Angioedema [Recovering/Resolving]
  - Rash [Unknown]
  - Urticaria [Unknown]
  - Skin discolouration [Unknown]

NARRATIVE: CASE EVENT DATE: 20170218
